FAERS Safety Report 21280448 (Version 2)
Quarter: 2022Q3

REPORT INFORMATION
  Report Type: Spontaneous
  Country: US (occurrence: US)
  Receive Date: 20220901
  Receipt Date: 20220922
  Transmission Date: 20221027
  Serious: No
  Sender: FDA-Public Use
  Company Number: US-PFIZER INC-202200074586

PATIENT
  Age: 70 Year
  Sex: Female
  Weight: 66.2 kg

DRUGS (4)
  1. IBRANCE [Suspect]
     Active Substance: PALBOCICLIB
     Indication: Breast cancer female
     Dosage: 125 MG, CYCLIC (FOR 3 CONSECUTIVE WEEKS THEN 1 WEEK OFF)
     Dates: start: 201601
  2. IBRANCE [Suspect]
     Active Substance: PALBOCICLIB
     Dosage: 125 MG, CYCLIC (3 WEEK ON DAILY/1 WEEK OFF)
     Dates: start: 201601
  3. LETROZOLE [Concomitant]
     Active Substance: LETROZOLE
     Dosage: UNK
     Dates: start: 201601, end: 201901
  4. FASLODEX [Concomitant]
     Active Substance: FULVESTRANT
     Dosage: 1 DF (1 SHOT), MONTHLY
     Dates: start: 201901

REACTIONS (1)
  - Neoplasm progression [Recovering/Resolving]

NARRATIVE: CASE EVENT DATE: 20160101
